FAERS Safety Report 10274154 (Version 1)
Quarter: 2014Q3

REPORT INFORMATION
  Report Type: Spontaneous
  Country: US (occurrence: US)
  Receive Date: 20140702
  Receipt Date: 20140702
  Transmission Date: 20150326
  Serious: Yes (Other)
  Sender: FDA-Public Use
  Company Number: PHHY2014US080353

PATIENT
  Age: 37 Year
  Sex: Female

DRUGS (2)
  1. TRIAMCINOLONE [Suspect]
     Active Substance: TRIAMCINOLONE
     Indication: EYE INFLAMMATION
  2. TRIAMCINOLONE [Suspect]
     Active Substance: TRIAMCINOLONE
     Indication: IRIDOCYCLITIS
     Dosage: 10 MG, UNK
     Route: 047

REACTIONS (5)
  - Retinal vein occlusion [Unknown]
  - Retinal scar [Unknown]
  - Retinitis viral [Recovering/Resolving]
  - Visual acuity reduced [Recovering/Resolving]
  - Necrotising retinitis [Recovered/Resolved]
